FAERS Safety Report 4498602-X (Version None)
Quarter: 2004Q4

REPORT INFORMATION
  Report Type: 
  Country: None (occurrence: None)
  Receive Date: 20041108
  Receipt Date: 20041026
  Transmission Date: 20050328
  Serious: Yes (Hospitalization)
  Sender: FDA-Public Use
  Company Number: US014181

PATIENT
  Sex: Male

DRUGS (2)
  1. GABITRIL [Suspect]
     Indication: BIPOLAR DISORDER
  2. TRAZODONE HCL [Concomitant]

REACTIONS (1)
  - CONVULSION [None]
